FAERS Safety Report 5824641-X (Version None)
Quarter: 2008Q3

REPORT INFORMATION
  Report Type: 
  Country: None (occurrence: None)
  Receive Date: 20080721
  Receipt Date: 20080708
  Transmission Date: 20090109
  Serious: Yes (Other)
  Sender: FDA-Public Use
  Company Number: GXKR2008CH06354

PATIENT
  Age: 11 Year
  Sex: Female

DRUGS (5)
  1. CYTARABINE [Suspect]
     Indication: NON-HODGKIN'S LYMPHOMA
     Dosage: 150 MG/M2/D X 2 D,
  2. DEXAMETHASONE [Suspect]
     Indication: NON-HODGKIN'S LYMPHOMA
     Dosage: 10 MG/M2/D X 5 D,
  3. ETOPOSIDE [Suspect]
     Indication: NON-HODGKIN'S LYMPHOMA
     Dosage: 100 MG/M2/D X 2 D,
  4. METHOTREXATE [Suspect]
     Indication: NON-HODGKIN'S LYMPHOMA
     Dosage: 5 G/M2 X 1 D,
  5. IFOSFAMIDE [Suspect]
     Indication: NON-HODGKIN'S LYMPHOMA
     Dosage: 800 MG/M2/D X 5 D,

REACTIONS (4)
  - ABDOMINAL PAIN LOWER [None]
  - APPENDICITIS [None]
  - FEBRILE NEUTROPENIA [None]
  - PAIN [None]
